FAERS Safety Report 6420542-7 (Version None)
Quarter: 2009Q4

REPORT INFORMATION
  Report Type: 
  Country: None (occurrence: None)
  Receive Date: 20091029
  Receipt Date: 20091020
  Transmission Date: 20100525
  Serious: Yes (Other)
  Sender: FDA-Public Use
  Company Number: JP-BAXTER-2009BH016238

PATIENT
  Age: 82 Year
  Sex: Male

DRUGS (4)
  1. ENDOXAN BAXTER [Suspect]
     Indication: LYMPHOCYTIC LYMPHOMA
     Route: 065
  2. DOXORUBICIN HCL [Suspect]
     Indication: LYMPHOCYTIC LYMPHOMA
     Route: 065
  3. VINCRISTINE [Suspect]
     Indication: LYMPHOCYTIC LYMPHOMA
     Route: 065
  4. PREDONINE [Suspect]
     Indication: LYMPHOCYTIC LYMPHOMA
     Route: 065

REACTIONS (2)
  - NASAL SINUS CANCER [None]
  - RECURRENT CANCER [None]
